FAERS Safety Report 4715532-6 (Version None)
Quarter: 2005Q3

REPORT INFORMATION
  Report Type: 
  Country: None (occurrence: None)
  Receive Date: 20050718
  Receipt Date: 20050706
  Transmission Date: 20060218
  Serious: Yes (Death, Hospitalization)
  Sender: FDA-Public Use
  Company Number: US-JNJFOC-20040705968

PATIENT
  Age: 60 Year
  Sex: Female

DRUGS (2)
  1. REMICADE [Suspect]
     Route: 042
  2. REMICADE [Suspect]
     Indication: RHEUMATOID ARTHRITIS
     Route: 042

REACTIONS (6)
  - CONVULSION [None]
  - CREUTZFELDT-JAKOB DISEASE [None]
  - DEMENTIA [None]
  - ENCEPHALOPATHY [None]
  - MYOCLONUS [None]
  - NERVOUS SYSTEM DISORDER [None]
